FAERS Safety Report 10373018 (Version 2)
Quarter: 2014Q3

REPORT INFORMATION
  Report Type: Spontaneous
  Country: US (occurrence: US)
  Receive Date: 20140808
  Receipt Date: 20140808
  Transmission Date: 20150326
  Serious: Yes (Hospitalization)
  Sender: FDA-Public Use
  Company Number: US-BRISTOL-MYERS SQUIBB COMPANY-19915891

PATIENT
  Age: 67 Year
  Sex: Female
  Weight: 89.34 kg

DRUGS (1)
  1. SPRYCEL [Suspect]
     Active Substance: DASATINIB
     Indication: CHRONIC MYELOID LEUKAEMIA
     Dosage: TAB
     Route: 048
     Dates: start: 201206

REACTIONS (5)
  - Dyspnoea [Unknown]
  - Blood pressure increased [Unknown]
  - Fatigue [Unknown]
  - Pleural effusion [Unknown]
  - Cough [Unknown]

NARRATIVE: CASE EVENT DATE: 2013
